FAERS Safety Report 21326148 (Version 7)
Quarter: 2022Q4

REPORT INFORMATION
  Report Type: Spontaneous
  Country: FR (occurrence: FR)
  Receive Date: 20220913
  Receipt Date: 20221125
  Transmission Date: 20230113
  Serious: Yes (Hospitalization, Other)
  Sender: FDA-Public Use
  Company Number: FR-CELLTRION INC.-2022FR013344

PATIENT

DRUGS (24)
  1. RITUXIMAB [Suspect]
     Active Substance: RITUXIMAB
     Indication: Primary amyloidosis
     Dosage: 500 MG/M2 MONTHLY (FIRST LINE THERAPY);500 MG/M2, QMO
     Route: 042
     Dates: start: 20210819, end: 20211014
  2. RITUXIMAB [Suspect]
     Active Substance: RITUXIMAB
     Indication: Lymphoplasmacytoid lymphoma/immunocytoma
     Dosage: 375 MG/M2 ON DAY 1 (THIRD LINE THERAPY)/ONE REGIMEN OF RITUXIMAB WAS BEING GIVEN ALONE
     Route: 042
  3. RITUXIMAB [Suspect]
     Active Substance: RITUXIMAB
     Dosage: 375 MG/M2 ON DAY 1 COMBINED WITH BENDAMUSTINE ON DAYS 1 AND 2/ONE REGIMEN OF RITUXIMAB WAS GIVEN IN
  4. RITUXIMAB [Suspect]
     Active Substance: RITUXIMAB
     Dosage: 375 MG
  5. RITUXIMAB [Suspect]
     Active Substance: RITUXIMAB
     Dosage: THIRD-LINE THERAPY ON D1
     Route: 042
  6. RITUXIMAB [Suspect]
     Active Substance: RITUXIMAB
     Dosage: 375 MG, UNKNOWN
  7. RITUXIMAB [Suspect]
     Active Substance: RITUXIMAB
     Dosage: 375 MG/M2 (D1)
     Route: 042
     Dates: start: 20201209, end: 20210204
  8. BENDAMUSTINE [Suspect]
     Active Substance: BENDAMUSTINE
     Indication: Primary amyloidosis
     Dosage: 50 MG/M2 ON DAYS 1 AND 2 WITH RITUXIMAB (THIRD LINE THERAPY)
     Route: 042
     Dates: start: 20210819, end: 20211014
  9. BENDAMUSTINE [Suspect]
     Active Substance: BENDAMUSTINE
     Indication: Lymphoplasmacytoid lymphoma/immunocytoma
     Dosage: 50 MG/M2, UNKNOWN
  10. BENDAMUSTINE [Suspect]
     Active Substance: BENDAMUSTINE
     Indication: B-cell small lymphocytic lymphoma
     Dosage: THIRD-LINE THERAPY ON D1 AND D2
  11. CYCLOPHOSPHAMIDE [Suspect]
     Active Substance: CYCLOPHOSPHAMIDE
     Indication: Primary amyloidosis
     Dosage: 100 MG, ON DAYS 1, 8 AND 15 (SECOND LINE THERAPY)
     Route: 048
     Dates: start: 20210303, end: 20210722
  12. CYCLOPHOSPHAMIDE [Suspect]
     Active Substance: CYCLOPHOSPHAMIDE
     Dosage: UNK
  13. BORTEZOMIB [Suspect]
     Active Substance: BORTEZOMIB
     Indication: Primary amyloidosis
     Dosage: 1 MG/M2, ON DAYS 1, 8, 15 AND 22 (SECOND LINE THERAPY)
     Route: 058
     Dates: start: 20210303, end: 20210722
  14. BORTEZOMIB [Suspect]
     Active Substance: BORTEZOMIB
     Dosage: UNK
  15. DEXAMETHASONE [Suspect]
     Active Substance: DEXAMETHASONE
     Indication: Primary amyloidosis
     Dosage: 100 MG, ON DAYS L, 8, 15 AND 22 (SECOND LINE THERAPY)
     Route: 048
  16. DEXAMETHASONE [Suspect]
     Active Substance: DEXAMETHASONE
     Dosage: UNK
  17. DEXAMETHASONE [Suspect]
     Active Substance: DEXAMETHASONE
     Dosage: 10MG ON DAY 1, DAY 8, DAY 15 AND DAY 22
     Route: 048
     Dates: start: 20211112
  18. DEXAMETHASONE [Suspect]
     Active Substance: DEXAMETHASONE
     Dosage: 10 MG (D1 D8 D15 D22)
     Route: 048
     Dates: start: 20210303, end: 20210722
  19. DARATUMUMAB [Concomitant]
     Active Substance: DARATUMUMAB
     Indication: Primary amyloidosis
     Dosage: 16 MG/KG ON DAY 1 (FOURTH LINE THERAPY)
     Route: 042
  20. DARATUMUMAB [Concomitant]
     Active Substance: DARATUMUMAB
     Dosage: 1800 MG FROM DAY 8 (FOURTH LINE THERAPY)
     Route: 058
  21. SARS-COV-2 VACCINE [Concomitant]
     Indication: COVID-19 immunisation
     Dosage: 3 ANTI-SARS-COV-2 VACCINES
  22. VALACYCLOVIR HYDROCHLORIDE [Concomitant]
     Active Substance: VALACYCLOVIR HYDROCHLORIDE
     Indication: Product used for unknown indication
     Dosage: UNK
  23. COTRIMOXAZOLE [Concomitant]
     Active Substance: SULFAMETHOXAZOLE\TRIMETHOPRIM
     Indication: Product used for unknown indication
     Dosage: UNK
  24. WARFARIN [Concomitant]
     Active Substance: WARFARIN
     Indication: Product used for unknown indication
     Dosage: UNK

REACTIONS (13)
  - Acute pulmonary oedema [Unknown]
  - Neutropenia [Unknown]
  - Acute kidney injury [Unknown]
  - Cardiac failure congestive [Unknown]
  - Cardiac failure [Unknown]
  - Atrial fibrillation [Unknown]
  - Erysipelas [Unknown]
  - Gout [Unknown]
  - Vaccination failure [Unknown]
  - Therapy non-responder [Unknown]
  - Drug ineffective [Unknown]
  - Off label use [Unknown]
  - Product use in unapproved indication [Unknown]
